FAERS Safety Report 14067167 (Version 2)
Quarter: 2017Q4

REPORT INFORMATION
  Report Type: Spontaneous
  Country: US (occurrence: US)
  Receive Date: 20171010
  Receipt Date: 20171212
  Transmission Date: 20180321
  Serious: Yes (Other)
  Sender: FDA-Public Use
  Company Number: US-ROCHE-2003148

PATIENT
  Age: 57 Year
  Sex: Female

DRUGS (2)
  1. OCREVUS [Suspect]
     Active Substance: OCRELIZUMAB
     Route: 042
  2. OCREVUS [Suspect]
     Active Substance: OCRELIZUMAB
     Indication: RELAPSING-REMITTING MULTIPLE SCLEROSIS
     Route: 042
     Dates: start: 20170826

REACTIONS (8)
  - Gait disturbance [Recovered/Resolved]
  - Femur fracture [Recovered/Resolved]
  - Feeling abnormal [Recovered/Resolved]
  - Hypersensitivity [Recovered/Resolved]
  - Fall [Unknown]
  - Hypoaesthesia [Recovered/Resolved]
  - Hypoaesthesia [Recovered/Resolved]
  - Ankle fracture [Recovered/Resolved]

NARRATIVE: CASE EVENT DATE: 20170907
